FAERS Safety Report 18734160 (Version 4)
Quarter: 2021Q2

REPORT INFORMATION
  Report Type: Spontaneous
  Country: JP (occurrence: JP)
  Receive Date: 20210113
  Receipt Date: 20210426
  Transmission Date: 20210717
  Serious: Yes (Hospitalization, Other)
  Sender: FDA-Public Use
  Company Number: NVSJ2021JP000476

PATIENT
  Age: 60 Year
  Sex: Female

DRUGS (6)
  1. MAYZENT [Suspect]
     Active Substance: SIPONIMOD
     Indication: SECONDARY PROGRESSIVE MULTIPLE SCLEROSIS
     Dosage: 0.25 MG, QD
     Route: 048
     Dates: start: 20201221, end: 20201221
  2. MAYZENT [Suspect]
     Active Substance: SIPONIMOD
     Dosage: 0.5 MG, QD
     Route: 048
     Dates: start: 20201223, end: 20201223
  3. MAYZENT [Suspect]
     Active Substance: SIPONIMOD
     Dosage: 1.25 MG, QD
     Route: 048
     Dates: start: 20201225, end: 20201225
  4. MAYZENT [Suspect]
     Active Substance: SIPONIMOD
     Dosage: 2 MG, QD
     Route: 048
     Dates: start: 20201226, end: 20210104
  5. MAYZENT [Suspect]
     Active Substance: SIPONIMOD
     Dosage: 0.25 MG, QD
     Route: 048
     Dates: start: 20201222, end: 20201222
  6. MAYZENT [Suspect]
     Active Substance: SIPONIMOD
     Dosage: 0.75 MG, QD
     Route: 048
     Dates: start: 20201224, end: 20201224

REACTIONS (3)
  - Multiple sclerosis relapse [Recovered/Resolved]
  - Diplopia [Recovered/Resolved]
  - Ophthalmoplegia [Recovered/Resolved]

NARRATIVE: CASE EVENT DATE: 20210104
